FAERS Safety Report 15625011 (Version 3)
Quarter: 2019Q1

REPORT INFORMATION
  Report Type: Report from Study
  Country: ES (occurrence: ES)
  Receive Date: 20181116
  Receipt Date: 20190222
  Transmission Date: 20190417
  Serious: Yes (Hospitalization, Disabling, Other)
  Sender: FDA-Public Use
  Company Number: PHHY2018ES140260

PATIENT
  Age: 49 Year
  Sex: Female
  Weight: 56 kg

DRUGS (11)
  1. MIDOSTAURIN [Suspect]
     Active Substance: MIDOSTAURIN
     Dosage: 100 MG, Q12H
     Route: 048
     Dates: end: 20190110
  2. MIDOSTAURIN [Suspect]
     Active Substance: MIDOSTAURIN
     Dosage: 75 MG, Q12H
     Route: 048
     Dates: start: 20181023
  3. MIDOSTAURIN [Suspect]
     Active Substance: MIDOSTAURIN
     Indication: SYSTEMIC MASTOCYTOSIS
     Dosage: 100 MG, Q12H
     Route: 048
     Dates: start: 20180511
  4. MIDOSTAURIN [Suspect]
     Active Substance: MIDOSTAURIN
     Dosage: 175 MG, QD (100-0-75 MG)
     Route: 048
     Dates: start: 20181102
  5. MIDOSTAURIN [Suspect]
     Active Substance: MIDOSTAURIN
     Dosage: 50 MG, Q12H
     Route: 048
     Dates: start: 20190122, end: 20190128
  6. MIDOSTAURIN [Suspect]
     Active Substance: MIDOSTAURIN
     Dosage: 125 MG, QD (50-0-75 MG)
     Route: 048
     Dates: start: 20190129, end: 20190211
  7. MIDOSTAURIN [Suspect]
     Active Substance: MIDOSTAURIN
     Dosage: 50 MG, QD
     Route: 048
     Dates: start: 20190114
  8. MIDOSTAURIN [Suspect]
     Active Substance: MIDOSTAURIN
     Indication: SARCOMA
     Dosage: 50 MG, Q12H
     Route: 048
     Dates: start: 20180524, end: 20180604
  9. MIDOSTAURIN [Suspect]
     Active Substance: MIDOSTAURIN
     Dosage: 75 MG, Q12H
     Route: 048
     Dates: start: 20190211
  10. MIDOSTAURIN [Suspect]
     Active Substance: MIDOSTAURIN
     Dosage: 25 MG, Q12H
     Route: 048
     Dates: start: 20190114, end: 20190121
  11. GRANISETRON [Concomitant]
     Active Substance: GRANISETRON
     Indication: PRODUCT USED FOR UNKNOWN INDICATION
     Route: 065

REACTIONS (8)
  - Abdominal pain upper [Unknown]
  - Vomiting [Recovered/Resolved with Sequelae]
  - Vomiting [Unknown]
  - Cholecystitis [Unknown]
  - Pyrexia [Recovered/Resolved]
  - Abdominal pain [Recovered/Resolved]
  - Nausea [Recovering/Resolving]
  - Diarrhoea [Recovered/Resolved]

NARRATIVE: CASE EVENT DATE: 201809
